FAERS Safety Report 8479121-2 (Version None)
Quarter: 2012Q2

REPORT INFORMATION
  Report Type: 
  Country: None (occurrence: None)
  Receive Date: 20120629
  Receipt Date: 20120622
  Transmission Date: 20120825
  Serious: Yes (Death, Hospitalization)
  Sender: FDA-Public Use
  Company Number: PHHY2012DE047431

PATIENT
  Sex: Male
  Weight: 67 kg

DRUGS (26)
  1. ZOLEDRONOC ACID [Suspect]
     Indication: BONE DISORDER
     Dosage: 4 MG, EVERY 4 WEEKS
     Route: 042
     Dates: start: 20110517, end: 20111114
  2. PREDNISOLONE [Concomitant]
     Dosage: 100 MG, UNK
     Dates: end: 20111209
  3. ZOFRAN [Concomitant]
     Dosage: AS NEEDED
  4. THALIDOMIDE [Concomitant]
     Dosage: UNK
  5. THALIDOMIDE [Concomitant]
     Dosage: UNK
     Dates: end: 20111001
  6. PIPERACILLIN AND TAZOBACTAM [Concomitant]
     Indication: PNEUMONIA
     Dosage: 1-0-1
     Route: 042
  7. CALCIUM EFFERVESCENT TABLET [Concomitant]
     Dosage: 1-0-1
  8. AMLODIPINE [Concomitant]
     Dosage: 1-0-0
  9. MELPHALAN HYDROCHLORIDE [Concomitant]
     Indication: CHEMOTHERAPY
     Dosage: UNK
     Dates: start: 20110228
  10. THALIDOMIDE [Concomitant]
     Indication: CHEMOTHERAPY
     Dosage: UNK
     Dates: start: 20110228, end: 20111001
  11. XIPAMIDE [Concomitant]
     Dosage: 1-0-0
  12. BICANORM [Concomitant]
     Dosage: 1-1-1
  13. MELPHALAN HYDROCHLORIDE [Concomitant]
     Dosage: UNK
     Dates: end: 20111001
  14. MELPHALAN HYDROCHLORIDE [Concomitant]
     Dosage: UNK
  15. BENDAMUSTINE [Concomitant]
     Dosage: 130 MG, UNK
     Dates: start: 20110901, end: 20111209
  16. DEXAMETHASONE [Concomitant]
     Dosage: 1-1-1
     Route: 042
  17. LEVOTHYROXINE SODIUM [Concomitant]
     Dosage: 1-0-0
  18. LORAZEPAM [Concomitant]
     Dosage: AS NEEDED
  19. PREDNISOLONE [Concomitant]
     Indication: CHEMOTHERAPY
     Dosage: UNK
     Dates: start: 20110228
  20. PREDNISOLONE [Concomitant]
     Dosage: 100 MG, UNK
     Dates: start: 20110901
  21. PREDNISOLONE [Concomitant]
     Dosage: 100 MG, UNK
     Dates: end: 20111001
  22. PANTOPRAZOLE [Concomitant]
     Dosage: 1-0-0-1
  23. MOVIPREP [Concomitant]
     Dosage: AS NEEDED
  24. BISOPROLOL FUMARATE [Concomitant]
     Dosage: 1-0-0
  25. METOCLOPRAMIDE [Concomitant]
     Indication: NAUSEA
     Dosage: 30 DROPS 1- 1-1
  26. MSI [Concomitant]
     Dosage: AS NEEDED
     Route: 058

REACTIONS (32)
  - NEOPLASM PROGRESSION [None]
  - VOMITING [None]
  - PULMONARY HYPERTENSION [None]
  - CHOLELITHIASIS [None]
  - MUSCLE ATROPHY [None]
  - ATRIAL HYPERTROPHY [None]
  - HYPERTENSION [None]
  - ASTHENIA [None]
  - CARDIAC FAILURE [None]
  - HYPERTENSIVE CARDIOMYOPATHY [None]
  - PROTHROMBIN TIME PROLONGED [None]
  - NEOPLASM MALIGNANT [None]
  - HYPERVISCOSITY SYNDROME [None]
  - NAUSEA [None]
  - GALLBLADDER OEDEMA [None]
  - SPLENOMEGALY [None]
  - EXOPHTHALMOS [None]
  - AORTIC ARTERIOSCLEROSIS [None]
  - RENAL CYST [None]
  - ATRIAL FIBRILLATION [None]
  - RENAL FAILURE ACUTE [None]
  - HYPOCALCAEMIA [None]
  - METABOLIC ACIDOSIS [None]
  - MITRAL VALVE INCOMPETENCE [None]
  - CACHEXIA [None]
  - PNEUMONIA [None]
  - THROMBOCYTOPENIA [None]
  - LEUKAEMIA PLASMACYTIC [None]
  - ANAEMIA [None]
  - HYPONATRAEMIA [None]
  - TRICUSPID VALVE INCOMPETENCE [None]
  - HYPERTROPHY [None]
